FAERS Safety Report 16490757 (Version 1)
Quarter: 2019Q3

REPORT INFORMATION
  Report Type: Spontaneous
  Country: US (occurrence: US)
  Receive Date: 20190627
  Receipt Date: 20190627
  Transmission Date: 20191004
  Serious: Yes (Other)
  Sender: FDA-Public Use
  Company Number: None

PATIENT
  Age: 59 Year
  Sex: Female

DRUGS (10)
  1. NITROFURANTN CAP 100 MG [Concomitant]
  2. NITROFURANTN CAP 100 MG [Concomitant]
  3. ZOLOFT TAB 50 MG [Concomitant]
  4. CLARITIN TAB 10 MG [Concomitant]
  5. FOSAMAX TAB 70 MG [Concomitant]
  6. ENBREL [Suspect]
     Active Substance: ETANERCEPT
     Indication: RHEUMATOID ARTHRITIS
     Dosage: ?          OTHER FREQUENCY:WEEKLY;?
     Route: 058
     Dates: start: 20180820
  7. PLAQUENIL [Concomitant]
     Active Substance: HYDROXYCHLOROQUINE SULFATE
  8. VITAMIN B12 TAB 5000 MCG [Concomitant]
  9. ZOLOFT TAB 50 MG [Concomitant]
  10. AMBIEN TAB 10 MG [Concomitant]

REACTIONS (2)
  - Therapy cessation [None]
  - Kidney infection [None]

NARRATIVE: CASE EVENT DATE: 20190612
